FAERS Safety Report 6167232-6 (Version None)
Quarter: 2009Q2

REPORT INFORMATION
  Report Type: 
  Country: None (occurrence: None)
  Receive Date: 20090424
  Receipt Date: 20090421
  Transmission Date: 20091009
  Serious: Yes (Hospitalization)
  Sender: FDA-Public Use
  Company Number: AU-BAYER-200918786GPV

PATIENT
  Age: 41 Year
  Sex: Female

DRUGS (1)
  1. ULTRAVIST 370 [Suspect]
     Indication: COMPUTERISED TOMOGRAM
     Route: 040
     Dates: start: 20090417, end: 20090417

REACTIONS (3)
  - DYSPHAGIA [None]
  - DYSPNOEA [None]
  - MASS [None]
